FAERS Safety Report 9685096 (Version 3)
Quarter: 2013Q4

REPORT INFORMATION
  Report Type: Spontaneous
  Country: GB (occurrence: GB)
  Receive Date: 20131113
  Receipt Date: 20131219
  Transmission Date: 20140711
  Serious: Yes (Other)
  Sender: FDA-Public Use
  Company Number: GB-RANBAXY-2013R1-75019

PATIENT
  Age: 27 Year
  Sex: Female
  Weight: 72 kg

DRUGS (5)
  1. ATORVASTATIN [Suspect]
     Indication: HYPERCHOLESTEROLAEMIA
     Dosage: 40 MG, 1X/DAY
     Route: 065
     Dates: start: 201204, end: 20130331
  2. VENLAFAXINE [Suspect]
     Indication: BORDERLINE PERSONALITY DISORDER
     Dosage: 300 MG, QD
     Route: 065
     Dates: start: 2009, end: 20131021
  3. VENLAFAXINE [Suspect]
     Indication: DEPRESSION
  4. VENLAFAXINE [Suspect]
     Indication: BORDERLINE PERSONALITY DISORDER
     Dosage: 275 MG, QD
     Route: 065
  5. VENLAFAXINE [Suspect]
     Indication: DEPRESSION

REACTIONS (1)
  - Abortion spontaneous [Unknown]
